FAERS Safety Report 23968642 (Version 1)
Quarter: 2024Q2

REPORT INFORMATION
  Report Type: Report from Study
  Country: GB (occurrence: GB)
  Receive Date: 20240612
  Receipt Date: 20240612
  Transmission Date: 20240716
  Serious: Yes (Other)
  Sender: FDA-Public Use
  Company Number: GB-SANDOZ-SDZ2023GB041688

PATIENT
  Age: 51 Year
  Sex: Male

DRUGS (2)
  1. HYRIMOZ [Suspect]
     Active Substance: ADALIMUMAB-ADAZ
     Dosage: 40 MG,EOW, 40MG/0.4ML
     Route: 058
     Dates: start: 20230905
  2. HYRIMOZ [Suspect]
     Active Substance: ADALIMUMAB-ADAZ
     Indication: Rheumatoid arthritis
     Dosage: 40 MG,EOW, 40MG/0.8ML
     Route: 058
     Dates: start: 20230906

REACTIONS (7)
  - Gastric ulcer [Unknown]
  - Duodenal ulcer [Unknown]
  - Infected bite [Recovered/Resolved]
  - Oral pain [Unknown]
  - Nasopharyngitis [Unknown]
  - Anaemia [Unknown]
  - Drug ineffective [Unknown]

NARRATIVE: CASE EVENT DATE: 20240201
